FAERS Safety Report 6466917-1 (Version None)
Quarter: 2009Q4

REPORT INFORMATION
  Report Type: 
  Country: None (occurrence: None)
  Receive Date: 20091202
  Receipt Date: 20091120
  Transmission Date: 20100525
  Serious: Yes (Other)
  Sender: FDA-Public Use
  Company Number: US-PFIZER INC-2009301190

PATIENT
  Sex: Male
  Weight: 70 kg

DRUGS (1)
  1. BEXTRA [Suspect]
     Indication: PAIN IN EXTREMITY
     Route: 048
     Dates: start: 20040901, end: 20040101

REACTIONS (4)
  - BLISTER [None]
  - CEREBROVASCULAR ACCIDENT [None]
  - SKIN DISORDER [None]
  - SKIN LESION [None]
